FAERS Safety Report 7026411-6 (Version None)
Quarter: 2010Q4

REPORT INFORMATION
  Report Type: 
  Country: None (occurrence: None)
  Receive Date: 20101004
  Receipt Date: 20100923
  Transmission Date: 20110411
  Serious: Yes (Hospitalization)
  Sender: FDA-Public Use
  Company Number: SE-ASTRAZENECA-2010SE44767

PATIENT
  Age: 87 Year
  Sex: Female

DRUGS (3)
  1. SEROQUEL [Suspect]
     Indication: DEPRESSION
     Route: 048
     Dates: end: 20100827
  2. SOBRIL [Concomitant]
  3. IMOVANE [Concomitant]

REACTIONS (1)
  - BLOOD BILIRUBIN INCREASED [None]
